FAERS Safety Report 5841506-8 (Version None)
Quarter: 2008Q3

REPORT INFORMATION
  Report Type: 
  Country: None (occurrence: None)
  Receive Date: 20080812
  Receipt Date: 20080731
  Transmission Date: 20090109
  Serious: Yes (Other)
  Sender: FDA-Public Use
  Company Number: GB-WYE-G01948708

PATIENT
  Age: 43 Year
  Sex: Female
  Weight: 88 kg

DRUGS (3)
  1. EFFEXOR XR [Suspect]
     Indication: HYPERHIDROSIS
     Dates: start: 20080619, end: 20080619
  2. CANDESARTAN [Concomitant]
     Indication: HYPERTENSION
     Dosage: 4 MG
     Route: 048
  3. BENDROFLUMETHIAZIDE [Concomitant]
     Indication: HYPERTENSION
     Dosage: 2.5 MG
     Route: 048

REACTIONS (7)
  - BLOOD PRESSURE INCREASED [None]
  - DRY MOUTH [None]
  - FEELING ABNORMAL [None]
  - HALLUCINATION [None]
  - PALPITATIONS [None]
  - PARAESTHESIA [None]
  - TREMOR [None]
